FAERS Safety Report 8107550-5 (Version None)
Quarter: 2012Q1

REPORT INFORMATION
  Report Type: 
  Country: None (occurrence: None)
  Receive Date: 20120202
  Receipt Date: 20120124
  Transmission Date: 20120608
  Serious: Yes (Hospitalization, Other)
  Sender: FDA-Public Use
  Company Number: US-BAYER-2011-086304

PATIENT
  Age: 17 Year
  Sex: Female
  Weight: 99.773 kg

DRUGS (7)
  1. YAZ [Suspect]
     Dosage: UNK
     Dates: start: 20000101, end: 20081001
  2. YASMIN [Suspect]
     Dosage: UNK
     Dates: start: 20000101, end: 20081001
  3. IBUPROFEN [Concomitant]
     Dosage: UNK
     Dates: start: 19940101
  4. DROSPIRENONE AND ETHINYL ESTRADIOL [Suspect]
     Dosage: UNK
     Dates: start: 20000101, end: 20081001
  5. HYDROCODONE BITARTRATE [Concomitant]
  6. OXYCODONE HCL [Concomitant]
  7. MAXAIR [Concomitant]
     Dosage: UNK
     Dates: start: 20010101, end: 20110101

REACTIONS (4)
  - PAIN [None]
  - PULMONARY EMBOLISM [None]
  - CHOLECYSTECTOMY [None]
  - INJURY [None]
